FAERS Safety Report 9751586 (Version 1)
Quarter: 2013Q4

REPORT INFORMATION
  Report Type: Spontaneous
  Country: US (occurrence: US)
  Receive Date: 20131212
  Receipt Date: 20131212
  Transmission Date: 20140711
  Serious: Yes (Hospitalization, Other)
  Sender: FDA-Public Use
  Company Number: US-ABBVIE-13P-163-1175464-00

PATIENT
  Age: 38 Year
  Sex: Female

DRUGS (2)
  1. LUPRON [Suspect]
     Indication: PRODUCT USED FOR UNKNOWN INDICATION
  2. CYMBALTA [Concomitant]
     Indication: NEURALGIA

REACTIONS (17)
  - Lung disorder [Unknown]
  - Lung disorder [Unknown]
  - Hysterectomy [Unknown]
  - Salpingo-oophorectomy bilateral [Unknown]
  - Adhesion [Unknown]
  - Thrombosis [Unknown]
  - Headache [Recovered/Resolved]
  - Dizziness [Recovered/Resolved]
  - Palpitations [Recovered/Resolved]
  - Pain [Unknown]
  - Dyspnoea [Unknown]
  - Uterine leiomyoma [Unknown]
  - Adenomyosis [Unknown]
  - Ovarian disorder [Unknown]
  - Urinary retention [Unknown]
  - Chills [Unknown]
  - Depression [Unknown]
